FAERS Safety Report 5807542-2 (Version None)
Quarter: 2008Q3

REPORT INFORMATION
  Report Type: 
  Country: None (occurrence: None)
  Receive Date: 20080711
  Receipt Date: 20080324
  Transmission Date: 20090109
  Serious: Yes (Death)
  Sender: FDA-Public Use
  Company Number: JP-ROCHE-555897

PATIENT

DRUGS (2)
  1. CALCITRIOL [Suspect]
     Indication: HYPERPARATHYROIDISM SECONDARY
     Dosage: GIVEN AT THE END OF EVERY DIALYSIS SESSION.
     Route: 042
  2. CALCITRIOL [Suspect]
     Dosage: AMOUNT ADJUSTED BETWEEN 0.5 AND 1.5 MCG TO AVOID DEVELOPMENT OF HYPERCALCAEMIA.
     Route: 042

REACTIONS (1)
  - DEATH [None]
